FAERS Safety Report 4699627-1 (Version None)
Quarter: 2005Q2

REPORT INFORMATION
  Report Type: 
  Country: None (occurrence: None)
  Receive Date: 20050623
  Receipt Date: 20050426
  Transmission Date: 20051028
  Serious: Yes (Hospitalization)
  Sender: FDA-Public Use
  Company Number: FABR-11094

PATIENT
  Age: 7 Year
  Sex: Male
  Weight: 43 kg

DRUGS (7)
  1. FABRAZYME [Suspect]
     Indication: FABRY'S DISEASE
     Dosage: 35 MG Q2WKS IV
     Route: 042
     Dates: start: 20050401
  2. FABRAZYME [Suspect]
     Indication: FABRY'S DISEASE
     Dosage: 30 MG Q2WKS IV
     Route: 042
     Dates: start: 20050301, end: 20050401
  3. FABRAZYME [Suspect]
     Indication: FABRY'S DISEASE
     Dosage: 20 MG Q2WKS IV
     Route: 042
     Dates: start: 20050201, end: 20050301
  4. FABRAZYME [Suspect]
     Indication: FABRY'S DISEASE
     Dosage: 10 MG Q2WKS IV
     Route: 042
     Dates: start: 20050101, end: 20050201
  5. FABRAZYME [Suspect]
     Indication: FABRY'S DISEASE
     Dosage: 5 MG Q2WKS IV
     Route: 042
     Dates: start: 20041215, end: 20050101
  6. LORATADINE [Concomitant]
  7. IBUPROFEN [Concomitant]

REACTIONS (4)
  - CENTRAL LINE INFECTION [None]
  - PAIN [None]
  - STAPHYLOCOCCAL BACTERAEMIA [None]
  - VIRAL INFECTION [None]
